FAERS Safety Report 5051797-1 (Version None)
Quarter: 2006Q3

REPORT INFORMATION
  Report Type: 
  Country: None (occurrence: None)
  Receive Date: 20060712
  Receipt Date: 20060712
  Transmission Date: 20061208
  Serious: Yes (Hospitalization)
  Sender: FDA-Public Use
  Company Number: None

PATIENT
  Age: 66 Year
  Sex: Male
  Weight: 92.5 kg

DRUGS (2)
  1. TERAZOSIN HCL [Suspect]
     Indication: BENIGN PROSTATIC HYPERPLASIA
     Dosage: 5 MG . 5 MG HS, ORAL
     Route: 048
     Dates: start: 20060512, end: 20060519
  2. LISINOPRIL [Concomitant]

REACTIONS (1)
  - BLOOD PRESSURE DECREASED [None]
